FAERS Safety Report 6852524-5 (Version None)
Quarter: 2010Q3

REPORT INFORMATION
  Report Type: 
  Country: None (occurrence: None)
  Receive Date: 20100717
  Receipt Date: 20071116
  Transmission Date: 20110219
  Serious: No
  Sender: FDA-Public Use
  Company Number: US-PFIZER INC-2007098844

PATIENT
  Sex: Female
  Weight: 90.909 kg

DRUGS (11)
  1. CHANTIX [Suspect]
     Indication: SMOKING CESSATION THERAPY
     Dates: start: 20071112
  2. AMOXAPINE [Concomitant]
  3. GABAPENTIN [Concomitant]
  4. SIMVASTATIN [Concomitant]
  5. ACETYLSALICYLIC ACID [Concomitant]
  6. CLONIDINE [Concomitant]
  7. METOPROLOL [Concomitant]
  8. HYDROCHLOROTHIAZIDE [Concomitant]
  9. FOLTX [Concomitant]
  10. GLYBURIDE [Concomitant]
  11. COZAAR [Concomitant]

REACTIONS (2)
  - NAUSEA [None]
  - VOMITING [None]
